FAERS Safety Report 5289748-7 (Version None)
Quarter: 2007Q2

REPORT INFORMATION
  Report Type: 
  Country: None (occurrence: None)
  Receive Date: 20070406
  Receipt Date: 20070327
  Transmission Date: 20071010
  Serious: Yes (Other)
  Sender: FDA-Public Use
  Company Number: ES-ABBOTT-07P-144-0363225-00

PATIENT
  Age: 46 Year
  Sex: Female

DRUGS (5)
  1. VALPROIC ACID [Suspect]
     Indication: EPILEPSY
     Route: 042
     Dates: start: 20050315, end: 20050315
  2. VALPROIC ACID [Suspect]
     Route: 042
     Dates: start: 20050315, end: 20050316
  3. VALPROIC ACID [Suspect]
     Dosage: NOT REPORTED
     Dates: start: 20050316, end: 20050318
  4. VALPROIC ACID [Suspect]
     Route: 042
     Dates: start: 20050318
  5. IMIPENEM [Interacting]
     Indication: OSTEOLYSIS
     Dosage: NOT REPORTED
     Dates: start: 20050311

REACTIONS (3)
  - DRUG INEFFECTIVE [None]
  - DRUG INTERACTION [None]
  - DRUG LEVEL DECREASED [None]
